FAERS Safety Report 15694714 (Version 3)
Quarter: 2019Q1

REPORT INFORMATION
  Report Type: Spontaneous
  Country: US (occurrence: US)
  Receive Date: 20181206
  Receipt Date: 20190116
  Transmission Date: 20190417
  Serious: Yes (Other)
  Sender: FDA-Public Use
  Company Number: US-PFIZER INC-2018497319

PATIENT
  Age: 79 Year
  Sex: Female
  Weight: 48.53 kg

DRUGS (2)
  1. NICOTROL [Suspect]
     Active Substance: NICOTINE
     Indication: SMOKING CESSATION THERAPY
     Dosage: 4 MG, AS NEEDED
     Route: 055
  2. NICOTROL [Suspect]
     Active Substance: NICOTINE
     Dosage: UNK, AS NEEDED

REACTIONS (2)
  - Breast cancer [Recovered/Resolved]
  - Drug dependence [Recovered/Resolved]

NARRATIVE: CASE EVENT DATE: 201809
